FAERS Safety Report 23803303 (Version 1)
Quarter: 2024Q2

REPORT INFORMATION
  Report Type: Spontaneous
  Country: US (occurrence: US)
  Receive Date: 20240501
  Receipt Date: 20240501
  Transmission Date: 20240715
  Serious: No
  Sender: FDA-Public Use
  Company Number: US-ABBVIE-5732869

PATIENT
  Sex: Female

DRUGS (1)
  1. HUMIRA [Suspect]
     Active Substance: ADALIMUMAB
     Indication: Product used for unknown indication
     Route: 058

REACTIONS (12)
  - Crohn^s disease [Unknown]
  - Erythema nodosum [Unknown]
  - Pain [Unknown]
  - Inflammatory bowel disease [Unknown]
  - Remission not achieved [Unknown]
  - Peripheral swelling [Unknown]
  - Contusion [Unknown]
  - Cellulitis [Unknown]
  - Rash papular [Unknown]
  - Rash [Unknown]
  - Condition aggravated [Unknown]
  - Erythema [Unknown]
